FAERS Safety Report 9598022 (Version 1)
Quarter: 2013Q4

REPORT INFORMATION
  Report Type: Spontaneous
  Country: US (occurrence: US)
  Receive Date: 20131004
  Receipt Date: 20131004
  Transmission Date: 20140711
  Serious: No
  Sender: FDA-Public Use
  Company Number: US-AMGEN-USASP2013022233

PATIENT
  Age: 52 Year
  Sex: Female

DRUGS (7)
  1. ENBREL [Suspect]
     Indication: PRODUCT USED FOR UNKNOWN INDICATION
     Dosage: 50 MG, QWK
     Route: 058
  2. METHOTREXATE [Concomitant]
     Dosage: 2.5 MG, UNK
  3. FOLIC ACID [Concomitant]
     Dosage: UNK
  4. ALEVE [Concomitant]
     Dosage: 220 MG, UNK
  5. PREDNISONE [Concomitant]
     Dosage: 1 MG, UNK
  6. FISH OIL [Concomitant]
     Dosage: UNK
  7. GINGER                             /01646602/ [Concomitant]
     Dosage: 250 MG, UNK

REACTIONS (2)
  - Injection site rash [Recovering/Resolving]
  - Injection site erythema [Recovering/Resolving]
